FAERS Safety Report 8680191 (Version 2)
Quarter: 2016Q3

REPORT INFORMATION
  Report Type: Spontaneous
  Country: US (occurrence: US)
  Receive Date: 20120724
  Receipt Date: 20160802
  Transmission Date: 20161109
  Serious: Yes (Hospitalization, Disabling, Other)
  Sender: FDA-Public Use
  Company Number: US-009507513-1207USA007175

PATIENT
  Sex: Female

DRUGS (4)
  1. FOSAMAX [Suspect]
     Active Substance: ALENDRONATE SODIUM
     Indication: OSTEOPOROSIS
     Dosage: UNK UNK, UNKNOWN
     Route: 048
     Dates: start: 199807, end: 2010
  2. RECLAST [Suspect]
     Active Substance: ZOLEDRONIC ACID
     Dosage: UNK UNK, UNKNOWN
     Route: 065
     Dates: start: 199807, end: 2010
  3. FOSAMAX PLUS D [Suspect]
     Active Substance: ALENDRONATE SODIUM\CHOLECALCIFEROL
     Indication: OSTEOPOROSIS
     Dosage: UNK, UNKNOWN
     Route: 048
     Dates: start: 199807, end: 2010
  4. FOSAMAX [Suspect]
     Active Substance: ALENDRONATE SODIUM
     Indication: OSTEOPOROSIS
     Dosage: UNK, UNKNOWN
     Route: 048
     Dates: start: 199807, end: 2010

REACTIONS (6)
  - Femur fracture [Recovered/Resolved]
  - Anaemia postoperative [Unknown]
  - Thrombocytopenia [Unknown]
  - Leukopenia [Unknown]
  - Rheumatoid arthritis [Unknown]
  - Biopsy bone abnormal [Unknown]

NARRATIVE: CASE EVENT DATE: 201007
